FAERS Safety Report 16101765 (Version 1)
Quarter: 2019Q1

REPORT INFORMATION
  Report Type: Report from Study
  Country: IT (occurrence: IT)
  Receive Date: 20190321
  Receipt Date: 20190321
  Transmission Date: 20190418
  Serious: Yes (Hospitalization)
  Sender: FDA-Public Use
  Company Number: IT-PFIZER INC-2019118836

PATIENT
  Age: 77 Year
  Sex: Female

DRUGS (7)
  1. DELTACORTENE [Concomitant]
     Active Substance: PREDNISONE
     Dosage: UNK
  2. HALCION [Suspect]
     Active Substance: TRIAZOLAM
     Indication: INSOMNIA
     Dosage: 250 UG, 1X/DAY
     Route: 048
     Dates: start: 20190218, end: 20190222
  3. HALCION [Suspect]
     Active Substance: TRIAZOLAM
     Dosage: UNK
  4. PANTORC [Concomitant]
     Active Substance: PANTOPRAZOLE SODIUM
  5. PLAVIX [Concomitant]
     Active Substance: CLOPIDOGREL BISULFATE
  6. ALLOPURINOLO [Concomitant]
     Active Substance: ALLOPURINOL
  7. CARDIAZOL-PARACODINA [Suspect]
     Active Substance: PENTETRAZOL
     Indication: COUGH
     Dosage: 10 GTT, 1X/DAY
     Route: 048
     Dates: start: 20190218, end: 20190222

REACTIONS (3)
  - Syncope [Unknown]
  - Malaise [Unknown]
  - Loss of consciousness [Unknown]

NARRATIVE: CASE EVENT DATE: 20190221
